FAERS Safety Report 15116998 (Version 1)
Quarter: 2018Q3

REPORT INFORMATION
  Report Type: Spontaneous
  Country: IT (occurrence: IT)
  Receive Date: 20180706
  Receipt Date: 20180706
  Transmission Date: 20181010
  Serious: Yes (Hospitalization)
  Sender: FDA-Public Use
  Company Number: IT-TEVA-2018-IT-921394

PATIENT
  Age: 18 Year
  Sex: Male
  Weight: 66 kg

DRUGS (5)
  1. VINCRISTINE [Concomitant]
     Active Substance: VINCRISTINE
     Indication: ACUTE LYMPHOCYTIC LEUKAEMIA
     Route: 042
     Dates: start: 20180322, end: 20180322
  2. METHOTREXATE. [Suspect]
     Active Substance: METHOTREXATE
     Indication: ACUTE LYMPHOCYTIC LEUKAEMIA
     Dosage: 8751  DAILY;
     Route: 042
     Dates: start: 20180322, end: 20180323
  3. RANITIDINE. [Concomitant]
     Active Substance: RANITIDINE
     Route: 065
  4. CYCLOPHOSPHAMIDE. [Concomitant]
     Active Substance: CYCLOPHOSPHAMIDE
     Indication: ACUTE LYMPHOCYTIC LEUKAEMIA
     Route: 065
     Dates: start: 20180323, end: 20180323
  5. NYSTATIN. [Concomitant]
     Active Substance: NYSTATIN
     Indication: ADJUVANT THERAPY
     Route: 065

REACTIONS (4)
  - Tremor [Recovered/Resolved with Sequelae]
  - Blood creatinine abnormal [Recovered/Resolved with Sequelae]
  - Malaise [Recovered/Resolved with Sequelae]
  - Investigation [Recovered/Resolved with Sequelae]

NARRATIVE: CASE EVENT DATE: 20180323
